FAERS Safety Report 17590340 (Version 1)
Quarter: 2020Q1

REPORT INFORMATION
  Report Type: Spontaneous
  Country: US (occurrence: US)
  Receive Date: 20200327
  Receipt Date: 20200327
  Transmission Date: 20200409
  Serious: Yes (Hospitalization, Other)
  Sender: FDA-Public Use
  Company Number: US-MYLANLABS-2020M1032403

PATIENT
  Age: 36 Year
  Sex: Male

DRUGS (9)
  1. ALLOPURINOL. [Concomitant]
     Active Substance: ALLOPURINOL
     Route: 065
  2. DIGOXIN. [Concomitant]
     Active Substance: DIGOXIN
     Route: 065
  3. METOLAZONE. [Concomitant]
     Active Substance: METOLAZONE
     Route: 065
  4. EPLERENONE. [Concomitant]
     Active Substance: EPLERENONE
     Route: 065
  5. APIXABAN [Suspect]
     Active Substance: APIXABAN
     Indication: ANTICOAGULANT THERAPY
     Dosage: UNK
     Route: 065
  6. MILRINONE [Concomitant]
     Active Substance: MILRINONE
     Dosage: ADMINISTERED VIA CENTRAL CATHETER
     Route: 065
  7. CARVEDILOL. [Concomitant]
     Active Substance: CARVEDILOL
     Route: 065
  8. MAGNESIUM OXIDE. [Concomitant]
     Active Substance: MAGNESIUM OXIDE
     Route: 065
  9. BUMETANIDE. [Concomitant]
     Active Substance: BUMETANIDE
     Route: 065

REACTIONS (4)
  - Candida sepsis [Recovered/Resolved]
  - Staphylococcal infection [Unknown]
  - Hyponatraemia [Unknown]
  - Endocarditis candida [Recovered/Resolved]
